FAERS Safety Report 6403323-X (Version None)
Quarter: 2009Q4

REPORT INFORMATION
  Report Type: 
  Country: None (occurrence: None)
  Receive Date: 20091016
  Receipt Date: 20091008
  Transmission Date: 20100525
  Serious: Yes (Other)
  Sender: FDA-Public Use
  Company Number: US-ASTRAZENECA-2006UW23375

PATIENT
  Age: 51 Year
  Sex: Male
  Weight: 93.4 kg

DRUGS (17)
  1. SEROQUEL [Suspect]
     Indication: SCHIZOPHRENIA
     Dosage: 100 MG-200 MG
     Route: 048
     Dates: start: 19970101, end: 20010101
  2. SEROQUEL [Suspect]
     Indication: DEPRESSION
     Dosage: 100 MG-200 MG
     Route: 048
     Dates: start: 19970101, end: 20010101
  3. SEROQUEL [Suspect]
     Dosage: 300MG TO 800 MG
     Route: 048
     Dates: start: 20021213, end: 20030819
  4. SEROQUEL [Suspect]
     Dosage: 300MG TO 800 MG
     Route: 048
     Dates: start: 20021213, end: 20030819
  5. CLOZARIL [Concomitant]
     Dates: end: 20010101
  6. GEODON [Concomitant]
     Route: 048
     Dates: start: 20021213
  7. GEODON [Concomitant]
     Dates: end: 19990101
  8. RISPERDAL [Concomitant]
     Dates: end: 19970101
  9. THORAZINE [Concomitant]
     Dates: end: 19970101
  10. ZYPREXA [Concomitant]
     Dates: end: 19970101
  11. ZOLOFT [Concomitant]
     Dates: end: 19940101
  12. PRINIVIL [Concomitant]
     Route: 048
     Dates: start: 20021213
  13. GLIPIZIDE [Concomitant]
     Dosage: 5 MG, 4 TABLET, TWICE A DAY
     Route: 048
     Dates: start: 20021213
  14. LIPITOR [Concomitant]
     Route: 048
     Dates: start: 20021213
  15. REMERON [Concomitant]
     Route: 048
     Dates: start: 20021213
  16. HYDROXYZINE [Concomitant]
     Indication: ANXIETY
     Route: 048
     Dates: start: 20050822
  17. LOXAPINE SUCCINATE [Concomitant]
     Route: 048
     Dates: start: 20030101

REACTIONS (10)
  - ADVERSE DRUG REACTION [None]
  - ANKLE FRACTURE [None]
  - BACK PAIN [None]
  - HYPERTENSION [None]
  - JOINT INJURY [None]
  - NEUROPATHY PERIPHERAL [None]
  - OBESITY [None]
  - PROSTATITIS [None]
  - TYPE 2 DIABETES MELLITUS [None]
  - VITAMIN B12 DEFICIENCY [None]
